FAERS Safety Report 4569486-6 (Version None)
Quarter: 2005Q1

REPORT INFORMATION
  Report Type: 
  Country: None (occurrence: None)
  Receive Date: 20050201
  Receipt Date: 20050114
  Transmission Date: 20050727
  Serious: Yes (Death, Life-Threatening)
  Sender: FDA-Public Use
  Company Number: A03200500006

PATIENT
  Age: 64 Year
  Sex: Male
  Weight: 105 kg

DRUGS (4)
  1. UROXATRAL [Suspect]
     Indication: BENIGN PROSTATIC HYPERPLASIA
     Dosage: 10 MG OD - ORAL
     Route: 048
     Dates: start: 20041222, end: 20041223
  2. AMIODARONE [Suspect]
     Indication: ATRIAL FIBRILLATION
     Dosage: 200 MG BID -ORAL
     Route: 048
     Dates: start: 20041222, end: 20041201
  3. FAMOTIDINE [Concomitant]
  4. RANITIDINE HYDROCHLORIDE [Concomitant]

REACTIONS (2)
  - ANOXIC ENCEPHALOPATHY [None]
  - TORSADE DE POINTES [None]
